FAERS Safety Report 9173710 (Version 1)
Quarter: 2013Q1

REPORT INFORMATION
  Report Type: Spontaneous
  Country: JP (occurrence: JP)
  Receive Date: 20130320
  Receipt Date: 20130320
  Transmission Date: 20140127
  Serious: Yes (Other)
  Sender: FDA-Public Use
  Company Number: JP-ASTELLAS-2013JP004024

PATIENT
  Age: 64 Year
  Sex: Male

DRUGS (5)
  1. PROGRAF [Suspect]
     Indication: PROPHYLAXIS AGAINST GRAFT VERSUS HOST DISEASE
     Route: 065
  2. FLUDARABINE [Concomitant]
     Indication: CORD BLOOD TRANSPLANT THERAPY
     Dosage: 180 MG/M2, UNKNOWN/D
     Route: 065
  3. BUSULFAN [Concomitant]
     Indication: CORD BLOOD TRANSPLANT THERAPY
     Dosage: 12.8 MG/KG, UNKNOWN/D
     Route: 042
  4. MELPHALAN [Concomitant]
     Indication: CORD BLOOD TRANSPLANT THERAPY
     Dosage: 40 MG/M2, UNKNOWN/D
     Route: 065
  5. MYCOPHENOLATE MOFETIL [Concomitant]
     Route: 065

REACTIONS (2)
  - Drug ineffective [Unknown]
  - Acute graft versus host disease [Recovering/Resolving]
